FAERS Safety Report 9728361 (Version 1)
Quarter: 2013Q4

REPORT INFORMATION
  Report Type: Spontaneous
  Country: US (occurrence: None)
  Receive Date: 20131203
  Receipt Date: 20131203
  Transmission Date: 20140711
  Serious: Yes (Other)
  Sender: FDA-Public Use
  Company Number: None

PATIENT
  Sex: Female

DRUGS (4)
  1. TRIAMCINILONE 40MG/ML NECC [Suspect]
     Indication: RHINITIS ALLERGIC
     Dosage: 2 SPRAY QD IN
     Dates: start: 2013
  2. ALLERGY IMMUNOTHOPY [Concomitant]
  3. BENADRYL PO [Concomitant]
  4. CETRIZINE PO [Concomitant]

REACTIONS (2)
  - Headache [None]
  - Product substitution issue [None]
